FAERS Safety Report 7426965-1 (Version None)
Quarter: 2011Q2

REPORT INFORMATION
  Report Type: 
  Country: None (occurrence: None)
  Receive Date: 20110420
  Receipt Date: 20110207
  Transmission Date: 20111010
  Serious: Yes (Other)
  Sender: FDA-Public Use
  Company Number: US-BAYER-201036004NA

PATIENT
  Age: 33 Year
  Sex: Female
  Weight: 54.9 kg

DRUGS (3)
  1. XANAX [Concomitant]
     Indication: INSOMNIA
  2. PERCOCET [Concomitant]
     Indication: PAIN
  3. YAZ [Suspect]
     Indication: MENSTRUAL DISORDER
     Dosage: UNK UNK, UNK
     Route: 048
     Dates: start: 20090513, end: 20090919

REACTIONS (3)
  - PULMONARY EMBOLISM [None]
  - CHEST PAIN [None]
  - DYSPNOEA [None]
